FAERS Safety Report 23766853 (Version 1)
Quarter: 2024Q2

REPORT INFORMATION
  Report Type: Report from Study
  Country: US (occurrence: US)
  Receive Date: 20240422
  Receipt Date: 20240422
  Transmission Date: 20240716
  Serious: Yes (Other)
  Sender: FDA-Public Use
  Company Number: US-JNJFOC-20240436634

PATIENT
  Age: 33 Year
  Sex: Female

DRUGS (2)
  1. SPRAVATO [Suspect]
     Active Substance: ESKETAMINE
     Indication: Depression
     Dosage: ^56 MG, 1 TOTAL DOSE^
     Dates: start: 20240108, end: 20240108
  2. SPRAVATO [Suspect]
     Active Substance: ESKETAMINE
     Dosage: ^84 MG, 17 TOTAL DOSES^
     Dates: start: 20240111, end: 20240411

REACTIONS (6)
  - Polycystic ovarian syndrome [Unknown]
  - Petit mal epilepsy [Unknown]
  - Malabsorption [Unknown]
  - Endometriosis [Unknown]
  - Memory impairment [Unknown]
  - Dissociation [Unknown]

NARRATIVE: CASE EVENT DATE: 20240101
